FAERS Safety Report 20309114 (Version 2)
Quarter: 2022Q1

REPORT INFORMATION
  Report Type: Spontaneous
  Country: US (occurrence: US)
  Receive Date: 20220107
  Receipt Date: 20220204
  Transmission Date: 20220423
  Serious: No
  Sender: FDA-Public Use
  Company Number: US-PFIZER INC-2021898419

PATIENT
  Age: 38 Year
  Sex: Female

DRUGS (2)
  1. NIVESTYM [Suspect]
     Active Substance: FILGRASTIM-AAFI
     Indication: Neutropenia
     Dosage: 300 UG
  2. NIVESTYM [Suspect]
     Active Substance: FILGRASTIM-AAFI
     Dosage: 300 UG/ML 1 VIAL PER DAY

REACTIONS (1)
  - Stomatitis [Unknown]
